FAERS Safety Report 8263455-0 (Version None)
Quarter: 2012Q2

REPORT INFORMATION
  Report Type: 
  Country: None (occurrence: None)
  Receive Date: 20120405
  Receipt Date: 20120330
  Transmission Date: 20120825
  Serious: Yes (Other)
  Sender: FDA-Public Use
  Company Number: US-ABBOTT-12P-163-0920644-00

PATIENT
  Sex: Female

DRUGS (1)
  1. HUMIRA [Suspect]
     Indication: CROHN'S DISEASE
     Dates: start: 20110901

REACTIONS (4)
  - HEART RATE ABNORMAL [None]
  - SYNCOPE [None]
  - CARDIAC ENZYMES INCREASED [None]
  - IMPAIRED GASTRIC EMPTYING [None]
